FAERS Safety Report 12916579 (Version 1)
Quarter: 2016Q4

REPORT INFORMATION
  Report Type: Spontaneous
  Country: US (occurrence: US)
  Receive Date: 20161107
  Receipt Date: 20161107
  Transmission Date: 20170207
  Serious: No
  Sender: FDA-Public Use
  Company Number: US-JAZZ-2016-US-016901

PATIENT
  Sex: Female

DRUGS (33)
  1. XYREM [Suspect]
     Active Substance: SODIUM OXYBATE
     Indication: CATAPLEXY
     Dosage: DOSE ADJUSTMENTS
     Route: 048
     Dates: start: 201308, end: 201508
  2. XYREM [Suspect]
     Active Substance: SODIUM OXYBATE
     Dosage: 4.5 G, BID
     Route: 048
     Dates: start: 201508
  3. GABAPENTIN. [Concomitant]
     Active Substance: GABAPENTIN
  4. CELEXA [Concomitant]
     Active Substance: CITALOPRAM HYDROBROMIDE
  5. ZYRTEC [Concomitant]
     Active Substance: CETIRIZINE HYDROCHLORIDE
  6. NORCO [Concomitant]
     Active Substance: ACETAMINOPHEN\HYDROCODONE BITARTRATE
  7. TIZANIDINE HCL [Concomitant]
     Active Substance: TIZANIDINE HYDROCHLORIDE
  8. XYREM [Suspect]
     Active Substance: SODIUM OXYBATE
     Indication: NARCOLEPSY
     Dosage: 2.25 G, BID
     Route: 048
     Dates: start: 201307, end: 201308
  9. LIDODERM [Concomitant]
     Active Substance: LIDOCAINE
  10. VICODIN [Concomitant]
     Active Substance: ACETAMINOPHEN\HYDROCODONE BITARTRATE
  11. FLEXERIL [Concomitant]
     Active Substance: CYCLOBENZAPRINE HYDROCHLORIDE
  12. BUSPIRONE HCL [Concomitant]
     Active Substance: BUSPIRONE HYDROCHLORIDE
  13. MIRENA [Concomitant]
     Active Substance: LEVONORGESTREL
  14. ADDERALL [Concomitant]
     Active Substance: AMPHETAMINE ASPARTATE\AMPHETAMINE SULFATE\DEXTROAMPHETAMINE SACCHARATE\DEXTROAMPHETAMINE SULFATE
  15. VISTARIL [Concomitant]
     Active Substance: HYDROXYZINE PAMOATE
  16. SAVELLA [Concomitant]
     Active Substance: MILNACIPRAN HYDROCHLORIDE
  17. TRAZODONE [Concomitant]
     Active Substance: TRAZODONE HYDROCHLORIDE
  18. VYVANSE [Concomitant]
     Active Substance: LISDEXAMFETAMINE DIMESYLATE
  19. FOLIC ACID. [Concomitant]
     Active Substance: FOLIC ACID
  20. VITAMIN B12 [Concomitant]
     Active Substance: CYANOCOBALAMIN
  21. AMITRIPTYLINE HCL [Concomitant]
     Active Substance: AMITRIPTYLINE
  22. MAGNESIUM OXIDE. [Concomitant]
     Active Substance: MAGNESIUM OXIDE
  23. MULTIVITAMINS [Concomitant]
     Active Substance: VITAMINS
  24. WELLBUTRIN [Concomitant]
     Active Substance: BUPROPION HYDROCHLORIDE
  25. PERCOCET [Concomitant]
     Active Substance: ACETAMINOPHEN\OXYCODONE HYDROCHLORIDE
  26. MINOCYCLINE [Concomitant]
     Active Substance: MINOCYCLINE\MINOCYCLINE HYDROCHLORIDE
  27. PRENATAL VITAMINS [Concomitant]
     Active Substance: VITAMINS
  28. CLONAZEPAM. [Concomitant]
     Active Substance: CLONAZEPAM
  29. STRATTERA [Concomitant]
     Active Substance: ATOMOXETINE HYDROCHLORIDE
  30. PROTONIX [Concomitant]
     Active Substance: PANTOPRAZOLE SODIUM
  31. VITAMIN D [Concomitant]
     Active Substance: CHOLECALCIFEROL
  32. VENOFER [Concomitant]
     Active Substance: IRON SUCROSE
  33. CALCIUM CARBONATE. [Concomitant]
     Active Substance: CALCIUM CARBONATE

REACTIONS (4)
  - Metabolic disorder [Unknown]
  - Insomnia [Not Recovered/Not Resolved]
  - Incorrect dose administered [Unknown]
  - Arthralgia [Not Recovered/Not Resolved]
